FAERS Safety Report 5169278-3 (Version None)
Quarter: 2006Q4

REPORT INFORMATION
  Report Type: 
  Country: None (occurrence: None)
  Receive Date: 20061127
  Receipt Date: 20061115
  Transmission Date: 20070319
  Serious: Yes (Hospitalization)
  Sender: FDA-Public Use
  Company Number: DE-2006-035591

PATIENT
  Sex: Male

DRUGS (1)
  1. BETAFERON (INTERFERON BETA - 1B)INJECTION, 250?G [Suspect]
     Indication: DRUG USE FOR UNKNOWN INDICATION
     Dosage: SUBCUTANEOUS
     Route: 058
     Dates: start: 20060714

REACTIONS (5)
  - ABDOMINAL PAIN LOWER [None]
  - LUNG DISORDER [None]
  - MUSCLE SPASMS [None]
  - MUSCULOSKELETAL STIFFNESS [None]
  - PYREXIA [None]
